FAERS Safety Report 19009263 (Version 1)
Quarter: 2021Q1

REPORT INFORMATION
  Report Type: Report from Study
  Country: CA (occurrence: CA)
  Receive Date: 20210316
  Receipt Date: 20210316
  Transmission Date: 20210420
  Serious: Yes (Hospitalization)
  Sender: FDA-Public Use
  Company Number: CA-TAKEDA-2021TUS014542

PATIENT
  Age: 78 Year
  Sex: Female

DRUGS (2)
  1. VEDOLIZUMAB [Suspect]
     Active Substance: VEDOLIZUMAB
     Indication: CROHN^S DISEASE
     Dosage: 300 MILLIGRAM
     Route: 042
     Dates: start: 20180919
  2. BUDESONIDE. [Concomitant]
     Active Substance: BUDESONIDE
     Dosage: 3 MILLIGRAM, QD

REACTIONS (1)
  - Cardiac disorder [Unknown]
